FAERS Safety Report 5117886-8 (Version None)
Quarter: 2006Q3

REPORT INFORMATION
  Report Type: 
  Country: None (occurrence: None)
  Receive Date: 20060929
  Receipt Date: 20060418
  Transmission Date: 20061208
  Serious: Yes (Disabling)
  Sender: FDA-Public Use
  Company Number: US-PURDUE-USA_2006_0024060

PATIENT
  Age: 63 Year
  Sex: Female

DRUGS (16)
  1. OXYCONTIN [Suspect]
     Indication: PAIN
     Dosage: 40 MG, Q12H
     Route: 048
     Dates: start: 20031009, end: 20031001
  2. OXYCONTIN [Suspect]
     Dosage: 40 MG, Q8H
     Route: 048
     Dates: start: 20031001, end: 20031030
  3. PERCOCET [Concomitant]
     Indication: PAIN MANAGEMENT
     Dosage: UNK MG, BID
     Route: 048
     Dates: start: 20030917, end: 20031030
  4. FLEXERIL [Concomitant]
  5. NEURONTIN [Concomitant]
  6. MIRALAX [Concomitant]
  7. ACCOLATE [Concomitant]
  8. ZANTAC [Concomitant]
  9. LIPITOR [Concomitant]
  10. PAXIL [Concomitant]
  11. NEW PHASE [Concomitant]
  12. FLONASE [Concomitant]
  13. ASCORBIC ACID [Concomitant]
  14. CALCIUM WITH VITAMIN D [Concomitant]
  15. VITAMIN B6 [Concomitant]
  16. VITAMIN E [Concomitant]

REACTIONS (14)
  - ABDOMINAL PAIN [None]
  - ANOREXIA [None]
  - ANXIETY [None]
  - CHILLS [None]
  - CRYING [None]
  - DIARRHOEA [None]
  - DISTURBANCE IN ATTENTION [None]
  - DRUG WITHDRAWAL SYNDROME [None]
  - GAIT DISTURBANCE [None]
  - HOT FLUSH [None]
  - INADEQUATE ANALGESIA [None]
  - NAUSEA [None]
  - RESTLESSNESS [None]
  - VOMITING [None]
